FAERS Safety Report 19282593 (Version 1)
Quarter: 2021Q2

REPORT INFORMATION
  Report Type: Spontaneous
  Country: GB (occurrence: GB)
  Receive Date: 20210520
  Receipt Date: 20210520
  Transmission Date: 20210717
  Serious: Yes (Other)
  Sender: FDA-Public Use
  Company Number: GB-TEVA-2021-GB-1911610

PATIENT
  Age: 61 Year
  Sex: Female

DRUGS (7)
  1. WARFARIN [Concomitant]
     Active Substance: WARFARIN
     Indication: PROTEIN S
     Dates: start: 1991
  2. RAMIPRIL. [Concomitant]
     Active Substance: RAMIPRIL
     Indication: BLOOD PRESSURE MEASUREMENT
     Dates: start: 2008
  3. LEVOTHYROXINE. [Concomitant]
     Active Substance: LEVOTHYROXINE
     Indication: HYPOTHYROIDISM
     Dates: start: 2008
  4. MORPHINE [Suspect]
     Active Substance: MORPHINE
     Indication: SKIN REACTION
     Route: 065
  5. LEMSIP [Concomitant]
  6. CARDICOR [Concomitant]
     Active Substance: BISOPROLOL
     Indication: HEART RATE
     Dates: start: 2008
  7. CETIRIZINE [Concomitant]
     Active Substance: CETIRIZINE HYDROCHLORIDE

REACTIONS (11)
  - Illness [Not Recovered/Not Resolved]
  - Hypoaesthesia [Not Recovered/Not Resolved]
  - Paraesthesia oral [Recovering/Resolving]
  - Cerebrovascular accident [Not Recovered/Not Resolved]
  - Sinus disorder [Recovering/Resolving]
  - Nasal congestion [Recovering/Resolving]
  - Nasal congestion [Not Recovered/Not Resolved]
  - Diarrhoea [Not Recovered/Not Resolved]
  - Sinusitis [Not Recovered/Not Resolved]
  - Chills [Recovered/Resolved]
  - Hypoaesthesia oral [Recovering/Resolving]

NARRATIVE: CASE EVENT DATE: 20210417
